FAERS Safety Report 24794113 (Version 7)
Quarter: 2025Q4

REPORT INFORMATION
  Report Type: Spontaneous
  Country: JP (occurrence: JP)
  Receive Date: 20241231
  Receipt Date: 20251201
  Transmission Date: 20260117
  Serious: Yes (Other)
  Sender: LUNDBECK
  Company Number: JP-SA-2024SA380499

PATIENT
  Age: 4 Year
  Sex: Male

DRUGS (19)
  1. SABRIL [Suspect]
     Active Substance: VIGABATRIN
     Indication: Infantile spasms
     Dosage: 250 MG, BID
     Route: 048
     Dates: start: 20210222, end: 20210224
  2. SABRIL [Suspect]
     Active Substance: VIGABATRIN
     Dosage: 200 MG, BID
     Route: 048
     Dates: start: 20231003, end: 20231211
  3. SABRIL [Suspect]
     Active Substance: VIGABATRIN
     Dosage: 150 MG, BID
     Route: 048
     Dates: start: 20231212, end: 20240130
  4. SABRIL [Suspect]
     Active Substance: VIGABATRIN
     Dosage: 100 MG, BID
     Route: 048
     Dates: end: 2025
  5. SABRIL [Suspect]
     Active Substance: VIGABATRIN
     Dosage: 375 MG, BID
     Route: 048
     Dates: start: 20210225, end: 20210303
  6. SABRIL [Suspect]
     Active Substance: VIGABATRIN
     Dosage: 500 MG, BID
     Route: 048
     Dates: start: 20210304, end: 20210510
  7. SABRIL [Suspect]
     Active Substance: VIGABATRIN
     Dosage: 550 MG, BID
     Route: 048
     Dates: start: 20210511, end: 20211123
  8. SABRIL [Suspect]
     Active Substance: VIGABATRIN
     Dosage: 500 MG, BID
     Route: 048
     Dates: start: 20211124, end: 20220516
  9. SABRIL [Suspect]
     Active Substance: VIGABATRIN
     Dosage: 450 MG, BID
     Route: 048
     Dates: start: 20220517, end: 20220613
  10. SABRIL [Suspect]
     Active Substance: VIGABATRIN
     Dosage: 375 MG, BID
     Route: 048
     Dates: start: 20220614, end: 20220718
  11. SABRIL [Suspect]
     Active Substance: VIGABATRIN
     Dosage: 300 MG, BID
     Route: 048
     Dates: start: 20220719, end: 20230904
  12. SABRIL [Suspect]
     Active Substance: VIGABATRIN
     Dosage: 250 MG, BID
     Route: 048
     Dates: start: 20230905, end: 20231002
  13. EVEROLIMUS [Suspect]
     Active Substance: EVEROLIMUS
     Indication: Infantile spasms
     Dosage: 1 MG/DAY
     Route: 048
     Dates: start: 20231212
  14. EVEROLIMUS [Suspect]
     Active Substance: EVEROLIMUS
     Dosage: 10 MG/DAY
     Route: 048
     Dates: end: 20241216
  15. EVEROLIMUS [Suspect]
     Active Substance: EVEROLIMUS
     Dosage: 5 MG/DAY
     Route: 048
     Dates: start: 20241217
  16. EVEROLIMUS [Suspect]
     Active Substance: EVEROLIMUS
     Dosage: UNK
     Route: 048
  17. PHENOBARBITAL [Concomitant]
     Active Substance: PHENOBARBITAL
     Indication: Infantile spasms
     Dosage: 40 MG/DAY
     Route: 048
     Dates: start: 20201125
  18. VALPROATE SODIUM [Concomitant]
     Active Substance: VALPROATE SODIUM
     Indication: Infantile spasms
     Dosage: 100 MG/DAY
     Route: 048
     Dates: start: 20210209
  19. ZONISAMIDE [Concomitant]
     Active Substance: ZONISAMIDE
     Indication: Infantile spasms
     Dosage: 30 MG/DAY
     Route: 048
     Dates: start: 20210818

REACTIONS (2)
  - Interstitial lung disease [Recovering/Resolving]
  - Disease progression [Recovering/Resolving]

NARRATIVE: CASE EVENT DATE: 20241224
